FAERS Safety Report 8318318-9 (Version None)
Quarter: 2012Q2

REPORT INFORMATION
  Report Type: 
  Country: None (occurrence: None)
  Receive Date: 20120427
  Receipt Date: 20090722
  Transmission Date: 20120825
  Serious: No
  Sender: FDA-Public Use
  Company Number: US-TEVA-2009008812

PATIENT
  Sex: Female

DRUGS (7)
  1. NUVIGIL [Suspect]
     Dosage: 75 MILLIGRAM;
     Dates: start: 20090611, end: 20090611
  2. AMITRIPTYLINE HCL [Concomitant]
     Indication: FIBROMYALGIA
     Dosage: 25 MILLIGRAM;
     Route: 048
     Dates: start: 19940101
  3. CALCIUM WITH VITAMIN D3 [Concomitant]
     Indication: VITAMIN SUPPLEMENTATION
     Route: 048
  4. NUVIGIL [Suspect]
     Dosage: 150 MILLIGRAM;
     Route: 048
     Dates: start: 20090609, end: 20090610
  5. MULTI-VITAMIN [Concomitant]
     Indication: VITAMIN SUPPLEMENTATION
     Route: 048
  6. HYDROXYCHLOROQUINE SULFATE [Concomitant]
     Indication: SYSTEMIC LUPUS ERYTHEMATOSUS
     Dosage: 200 MILLIGRAM;
     Route: 048
     Dates: start: 19940101
  7. NUVIGIL [Suspect]
     Indication: HYPERSOMNIA
     Dosage: 75 MILLIGRAM;
     Route: 048
     Dates: start: 20090605, end: 20090608

REACTIONS (5)
  - DISTURBANCE IN SOCIAL BEHAVIOUR [None]
  - HEADACHE [None]
  - PSYCHOMOTOR HYPERACTIVITY [None]
  - INSOMNIA [None]
  - DYSPNOEA [None]
